FAERS Safety Report 6080003-4 (Version None)
Quarter: 2009Q1

REPORT INFORMATION
  Report Type: 
  Country: None (occurrence: None)
  Receive Date: 20090217
  Receipt Date: 20090116
  Transmission Date: 20090719
  Serious: No
  Sender: FDA-Public Use
  Company Number: A0763778A

PATIENT
  Age: 80 Year
  Sex: Female

DRUGS (5)
  1. COREG CR [Suspect]
     Dosage: 10MG PER DAY
     Route: 048
     Dates: start: 20080827
  2. DIGOXIN [Concomitant]
  3. VITAMIN D [Concomitant]
  4. COUMADIN [Concomitant]
  5. ZOLEDRONIC ACID [Concomitant]

REACTIONS (3)
  - DIZZINESS [None]
  - HAIR COLOUR CHANGES [None]
  - OCULAR HYPERAEMIA [None]
